FAERS Safety Report 24345794 (Version 1)
Quarter: 2024Q3

REPORT INFORMATION
  Report Type: Spontaneous
  Country: US (occurrence: US)
  Receive Date: 20240920
  Receipt Date: 20240920
  Transmission Date: 20241017
  Serious: Yes (Other)
  Sender: VIVUS
  Company Number: US-VIVUS LLC-2023V1001201

PATIENT
  Sex: Female

DRUGS (1)
  1. QSYMIA [Suspect]
     Active Substance: PHENTERMINE HYDROCHLORIDE\TOPIRAMATE
     Indication: Product used for unknown indication
     Route: 048

REACTIONS (3)
  - Suicidal ideation [Recovering/Resolving]
  - Personality change [Recovering/Resolving]
  - Depression [Recovering/Resolving]
